FAERS Safety Report 4645085-2 (Version None)
Quarter: 2005Q2

REPORT INFORMATION
  Report Type: 
  Country: None (occurrence: None)
  Receive Date: 20050422
  Receipt Date: 20050415
  Transmission Date: 20051028
  Serious: Yes (Life-Threatening, Hospitalization, Other)
  Sender: FDA-Public Use
  Company Number: HQWYE072318APR05

PATIENT
  Age: 42 Year
  Sex: Female

DRUGS (11)
  1. TAZOCIN (PIPERACILLIN/TAZOBACTAM, INJECTION) [Suspect]
     Indication: PNEUMONIA ASPIRATION
     Dosage: INTRAVENOUS
     Route: 042
     Dates: start: 20050201
  2. SYNTHROID [Concomitant]
  3. KYTRIL [Concomitant]
  4. AMERGE [Concomitant]
  5. CALCIUM (CALCIUM) [Concomitant]
  6. CITALOPRAM (CITALOPRAM) [Concomitant]
  7. KLONOPIN [Concomitant]
  8. MULTIVITAMINS, PLAIN (MULTIVITAMINS, PLAIN) [Concomitant]
  9. QUININE SULFATE (QUININE SULFATE) [Concomitant]
  10. FENTANYL CITRATE [Concomitant]
  11. WARFARIN SODIUM [Concomitant]

REACTIONS (3)
  - ANAPHYLACTIC REACTION [None]
  - CARDIO-RESPIRATORY ARREST [None]
  - DYSPNOEA [None]
